FAERS Safety Report 5827075-7 (Version None)
Quarter: 2008Q3

REPORT INFORMATION
  Report Type: 
  Country: None (occurrence: None)
  Receive Date: 20080730
  Receipt Date: 20080721
  Transmission Date: 20090109
  Serious: Yes (Hospitalization)
  Sender: FDA-Public Use
  Company Number: B0530017A

PATIENT
  Age: 77 Year
  Sex: Female
  Weight: 89 kg

DRUGS (6)
  1. ARIXTRA [Suspect]
     Indication: PHLEBITIS
     Dosage: 7.5MG PER DAY
     Route: 058
     Dates: start: 20080509, end: 20080527
  2. AUGMENTIN '125' [Concomitant]
     Indication: ERYSIPELAS
     Route: 065
     Dates: start: 20080509, end: 20080527
  3. ALDALIX [Concomitant]
     Route: 065
     Dates: end: 20080527
  4. MEDIATENSYL [Concomitant]
     Route: 065
     Dates: end: 20080527
  5. KENZEN [Concomitant]
     Route: 065
     Dates: end: 20080527
  6. OMEPRAZOLE [Concomitant]
     Route: 065
     Dates: end: 20080527

REACTIONS (9)
  - ABDOMINAL MASS [None]
  - ABDOMINAL PAIN LOWER [None]
  - ABDOMINAL RIGIDITY [None]
  - ABDOMINAL WALL HAEMATOMA [None]
  - ANAEMIA [None]
  - FLANK PAIN [None]
  - ILEUS PARALYTIC [None]
  - KAOLIN CEPHALIN CLOTTING TIME PROLONGED [None]
  - RESPIRATORY FAILURE [None]
